FAERS Safety Report 20862946 (Version 2)
Quarter: 2022Q3

REPORT INFORMATION
  Report Type: Spontaneous
  Country: JP (occurrence: JP)
  Receive Date: 20220523
  Receipt Date: 20220722
  Transmission Date: 20221026
  Serious: Yes (Hospitalization)
  Sender: FDA-Public Use
  Company Number: JP-ALLERGAN-2216763US

PATIENT
  Sex: Male

DRUGS (1)
  1. ASENAPINE MALEATE [Suspect]
     Active Substance: ASENAPINE MALEATE
     Indication: Restlessness
     Dosage: UNK
     Route: 060

REACTIONS (7)
  - Anaemia [Recovered/Resolved]
  - Haematoma [Recovered/Resolved]
  - Spinal cord injury [Recovered/Resolved]
  - Monoplegia [Recovered/Resolved]
  - Fracture [Recovered/Resolved]
  - Neuroleptic malignant syndrome [Recovered/Resolved]
  - Off label use [Unknown]
